FAERS Safety Report 5718879-X (Version None)
Quarter: 2008Q2

REPORT INFORMATION
  Report Type: 
  Country: None (occurrence: None)
  Receive Date: 20080425
  Receipt Date: 20080417
  Transmission Date: 20081010
  Serious: Yes (Other)
  Sender: FDA-Public Use
  Company Number: BR-PFIZER INC-2008034652

PATIENT
  Sex: Female

DRUGS (2)
  1. CELEBRA [Suspect]
     Indication: PAIN
     Route: 048
  2. RIVOTRIL [Concomitant]
     Route: 048

REACTIONS (9)
  - BLOOD PRESSURE INCREASED [None]
  - CEREBRAL THROMBOSIS [None]
  - CHONDROPATHY [None]
  - DRUG INEFFECTIVE [None]
  - FALL [None]
  - HYPERHIDROSIS [None]
  - MENTAL IMPAIRMENT [None]
  - OEDEMA MOUTH [None]
  - PAIN [None]
